FAERS Safety Report 9083259 (Version 1)
Quarter: 2013Q1

REPORT INFORMATION
  Report Type: Report from Study
  Country: US (occurrence: US)
  Receive Date: 20130131
  Receipt Date: 20130131
  Transmission Date: 20140127
  Serious: No
  Sender: FDA-Public Use
  Company Number: US-ABBOTT-12P-163-0991377-00

PATIENT
  Sex: Female

DRUGS (1)
  1. HUMIRA [Suspect]
     Indication: PSORIASIS
     Route: 058
     Dates: start: 200904

REACTIONS (4)
  - Milia [Not Recovered/Not Resolved]
  - Milia [Not Recovered/Not Resolved]
  - Milia [Not Recovered/Not Resolved]
  - Wound [Not Recovered/Not Resolved]
